FAERS Safety Report 8063270-7 (Version None)
Quarter: 2012Q1

REPORT INFORMATION
  Report Type: 
  Country: None (occurrence: None)
  Receive Date: 20120123
  Receipt Date: 20120111
  Transmission Date: 20120608
  Serious: Yes (Death, Life-Threatening)
  Sender: FDA-Public Use
  Company Number: JP-SANOFI-AVENTIS-200820384GDDC

PATIENT
  Age: 70 Year
  Sex: Male
  Weight: 43.5 kg

DRUGS (9)
  1. NEUTROGIN [Suspect]
     Indication: NEUTROPENIA
     Route: 058
     Dates: start: 20081017, end: 20081019
  2. TAXOTERE [Suspect]
     Indication: HYPOPHARYNGEAL CANCER STAGE IV
     Route: 041
     Dates: start: 20081010, end: 20081010
  3. CEFOPERAZONE SODIUM/SULBACTAM SODIUM [Concomitant]
     Dosage: DOSE AS USED: UNK
     Dates: start: 20081019, end: 20081021
  4. GARENOXACIN MESYLATE [Concomitant]
  5. ONDANSETRON HCL [Concomitant]
     Dosage: DOSE AS USED: UNK
     Route: 065
     Dates: start: 20081010, end: 20081010
  6. CEFOZOPRAN [Concomitant]
  7. DECADRON PHOSPHATE [Concomitant]
     Dosage: DOSE AS USED: UNK
     Route: 065
     Dates: start: 20081010, end: 20081010
  8. FENTANYL [Suspect]
     Indication: CANCER PAIN
     Route: 062
     Dates: start: 20081021
  9. CEFMETAZOLE [Concomitant]

REACTIONS (15)
  - RESPIRATORY FAILURE [None]
  - NEUTROPHIL COUNT DECREASED [None]
  - DISEASE PROGRESSION [None]
  - HYPOALBUMINAEMIA [None]
  - PNEUMONIA [None]
  - PULMONARY OEDEMA [None]
  - DEHYDRATION [None]
  - RENAL FAILURE ACUTE [None]
  - C-REACTIVE PROTEIN INCREASED [None]
  - DISSEMINATED INTRAVASCULAR COAGULATION [None]
  - BLOOD PRESSURE DECREASED [None]
  - ACUTE RESPIRATORY DISTRESS SYNDROME [None]
  - INFECTION [None]
  - DYSPNOEA [None]
  - WHITE BLOOD CELL COUNT DECREASED [None]
